FAERS Safety Report 6392313-1 (Version None)
Quarter: 2009Q4

REPORT INFORMATION
  Report Type: 
  Country: None (occurrence: None)
  Receive Date: 20091007
  Receipt Date: 20090924
  Transmission Date: 20100525
  Serious: Yes (Other)
  Sender: FDA-Public Use
  Company Number: PHHY2009CL27107

PATIENT
  Age: 72 Year
  Sex: Female

DRUGS (4)
  1. TAREG D [Suspect]
     Indication: HYPERTENSION
     Dosage: ONE TABLET (VALSARTAN 160 MG + 12.5 MG HYDROCHLOROTHIAZIDE) PER DAY
     Route: 048
  2. ASPIRIN [Concomitant]
  3. PROPRANOLOL [Concomitant]
  4. ATORVASTATIN [Concomitant]

REACTIONS (2)
  - KNEE OPERATION [None]
  - OSTEOARTHRITIS [None]
